FAERS Safety Report 7132169-2 (Version None)
Quarter: 2010Q4

REPORT INFORMATION
  Report Type: 
  Country: None (occurrence: None)
  Receive Date: 20101202
  Receipt Date: 20101123
  Transmission Date: 20110411
  Serious: Yes (Other)
  Sender: FDA-Public Use
  Company Number: US-ASTRAZENECA-2010SE41957

PATIENT
  Age: 59 Year
  Sex: Female
  Weight: 65.8 kg

DRUGS (6)
  1. ARIMIDEX [Suspect]
     Indication: BREAST CANCER
     Route: 048
     Dates: start: 20100827, end: 20100828
  2. NOLVADEX [Suspect]
     Route: 048
     Dates: start: 20080501, end: 20100801
  3. TYLENOL [Concomitant]
     Route: 048
  4. ZITHROMAX [Concomitant]
     Indication: COUGH
     Route: 048
  5. HERBAL DRUGS [Concomitant]
  6. SINGULAIR [Concomitant]
     Route: 048

REACTIONS (12)
  - ARTHRALGIA [None]
  - BACK PAIN [None]
  - BONE CANCER METASTATIC [None]
  - BONE PAIN [None]
  - BRONCHIECTASIS [None]
  - COUGH [None]
  - FEELING ABNORMAL [None]
  - LUNG INFECTION [None]
  - OROPHARYNGEAL PAIN [None]
  - PARAESTHESIA [None]
  - PYREXIA [None]
  - SPUTUM INCREASED [None]
